FAERS Safety Report 6900347-0 (Version None)
Quarter: 2010Q3

REPORT INFORMATION
  Report Type: 
  Country: None (occurrence: None)
  Receive Date: 20100708
  Receipt Date: 20100226
  Transmission Date: 20110219
  Serious: Yes (Other)
  Sender: FDA-Public Use
  Company Number: 2010016499

PATIENT
  Age: 65 Year
  Sex: Female
  Weight: 54.4 kg

DRUGS (1)
  1. CHANTIX [Suspect]
     Indication: SMOKING CESSATION THERAPY
     Dosage: 0.5 MG, 1X/DAY, ORAL
     Route: 048
     Dates: start: 20100125

REACTIONS (9)
  - CHILLS [None]
  - DEPRESSION [None]
  - ERYTHEMA [None]
  - HALLUCINATION [None]
  - MALAISE [None]
  - NERVOUSNESS [None]
  - NIGHTMARE [None]
  - SUICIDAL IDEATION [None]
  - TREMOR [None]
